FAERS Safety Report 7605256-X (Version None)
Quarter: 2011Q3

REPORT INFORMATION
  Report Type: 
  Country: None (occurrence: None)
  Receive Date: 20110713
  Receipt Date: 20110706
  Transmission Date: 20111222
  Serious: Yes (Hospitalization, Other)
  Sender: FDA-Public Use
  Company Number: DE-ABBOTT-11P-062-0725157-00

PATIENT
  Sex: Female
  Weight: 110 kg

DRUGS (11)
  1. HUMIRA [Suspect]
     Indication: RHEUMATOID ARTHRITIS
     Dosage: 1 IN 2 WKS, PAUSED ONCE ON 14 JAN 2011
     Route: 058
     Dates: start: 20101119, end: 20110114
  2. HUMIRA [Suspect]
     Dates: end: 20110311
  3. ARAVA [Concomitant]
     Indication: PRODUCT USED FOR UNKNOWN INDICATION
     Dosage: DISCONTINUED DUE TO LACK OF EFFICACY
     Dates: start: 20100301, end: 20110301
  4. GLUCOCORTICOIDS [Concomitant]
     Indication: PRODUCT USED FOR UNKNOWN INDICATION
     Dates: start: 20110323
  5. PREDNISOLONE [Concomitant]
     Dates: start: 20110322
  6. OLMESARTAN MEDOXOMIL [Concomitant]
     Indication: PRODUCT USED FOR UNKNOWN INDICATION
     Route: 048
  7. METHOTREXATE [Suspect]
     Dosage: 20 MG
     Route: 048
     Dates: start: 20091120
  8. METHOTREXATE [Concomitant]
     Indication: PRODUCT USED FOR UNKNOWN INDICATION
     Dates: start: 20110225
  9. FOLIC ACID [Concomitant]
     Indication: PRODUCT USED FOR UNKNOWN INDICATION
  10. METHOTREXATE [Suspect]
     Indication: RHEUMATOID ARTHRITIS
     Route: 048
     Dates: start: 20091111
  11. PREDNISOLONE [Suspect]
     Indication: PRODUCT USED FOR UNKNOWN INDICATION

REACTIONS (10)
  - SPUTUM DISCOLOURED [None]
  - IRON DEFICIENCY ANAEMIA [None]
  - JOINT RANGE OF MOTION DECREASED [None]
  - RESPIRATORY TRACT INFECTION [None]
  - DRUG INEFFECTIVE [None]
  - JOINT SWELLING [None]
  - CHEST X-RAY ABNORMAL [None]
  - AORTIC ARTERIOSCLEROSIS [None]
  - PYREXIA [None]
  - ARTHRALGIA [None]
